FAERS Safety Report 17879008 (Version 3)
Quarter: 2020Q4

REPORT INFORMATION
  Report Type: Report from Study
  Country: US (occurrence: US)
  Receive Date: 20200610
  Receipt Date: 20201112
  Transmission Date: 20210113
  Serious: Yes (Other)
  Sender: FDA-Public Use
  Company Number: US-BRISTOL-MYERS SQUIBB COMPANY-BMS-2020-022128

PATIENT
  Sex: Female

DRUGS (2)
  1. ABATACEPT [Suspect]
     Active Substance: ABATACEPT
     Indication: RHEUMATOID ARTHRITIS
     Dosage: 125 MILLIGRAM, QWK, EVERY  MONDAY
     Route: 058
     Dates: start: 20200127
  2. ABATACEPT [Suspect]
     Active Substance: ABATACEPT
     Indication: RHEUMATOID ARTHRITIS
     Dosage: 125 MILLIGRAM, QWK, EVERY  MONDAY
     Route: 058
     Dates: start: 20200127

REACTIONS (3)
  - Stomatitis [Recovering/Resolving]
  - Gallbladder disorder [Recovered/Resolved]
  - Candida infection [Not Recovered/Not Resolved]
